FAERS Safety Report 8290586-1 (Version None)
Quarter: 2012Q2

REPORT INFORMATION
  Report Type: 
  Country: None (occurrence: None)
  Receive Date: 20120412
  Receipt Date: 20120412
  Transmission Date: 20120825
  Serious: Yes (Other)
  Sender: FDA-Public Use
  Company Number: None

PATIENT

DRUGS (1)
  1. TRILEPTAL [Suspect]
     Indication: EPILEPSY
     Dosage: 7ML BID PO
     Route: 048
     Dates: start: 20081001

REACTIONS (3)
  - CONVULSION [None]
  - THERAPY REGIMEN CHANGED [None]
  - CONDITION AGGRAVATED [None]
